FAERS Safety Report 24364060 (Version 1)
Quarter: 2024Q3

REPORT INFORMATION
  Report Type: Spontaneous
  Country: JP (occurrence: JP)
  Receive Date: 20240925
  Receipt Date: 20240925
  Transmission Date: 20241017
  Serious: Yes (Death)
  Sender: ELI LILLY AND CO
  Company Number: JP-ELI_LILLY_AND_COMPANY-JP202408007514

PATIENT

DRUGS (3)
  1. NECITUMUMAB [Suspect]
     Active Substance: NECITUMUMAB
     Indication: Squamous cell carcinoma of lung
     Dosage: UNK, UNKNOWN
     Route: 041
  2. CISPLATIN [Concomitant]
     Active Substance: CISPLATIN
     Indication: Squamous cell carcinoma of lung
  3. GEMCITABINE [Concomitant]
     Active Substance: GEMCITABINE
     Indication: Squamous cell carcinoma of lung

REACTIONS (2)
  - COVID-19 [Fatal]
  - Decreased appetite [Not Recovered/Not Resolved]
